FAERS Safety Report 5084092-5 (Version None)
Quarter: 2006Q3

REPORT INFORMATION
  Report Type: 
  Country: None (occurrence: None)
  Receive Date: 20060821
  Receipt Date: 20060814
  Transmission Date: 20061208
  Serious: Yes (Other)
  Sender: FDA-Public Use
  Company Number: US-JNJFOC-20060803456

PATIENT
  Sex: Male
  Weight: 90.72 kg

DRUGS (3)
  1. REMICADE [Suspect]
     Indication: CROHN'S DISEASE
  2. PREDNISONE [Concomitant]
  3. SULFADINE [Concomitant]

REACTIONS (2)
  - APPENDICECTOMY [None]
  - SERUM SICKNESS [None]
